FAERS Safety Report 4454105-X (Version None)
Quarter: 2004Q3

REPORT INFORMATION
  Report Type: 
  Country: None (occurrence: None)
  Receive Date: 20040826
  Receipt Date: 20040510
  Transmission Date: 20050211
  Serious: No
  Sender: FDA-Public Use
  Company Number: WAES 0405USA00636

PATIENT
  Age: 70 Year
  Sex: Female

DRUGS (11)
  1. ZETIA [Suspect]
     Indication: HYPERCHOLESTEROLAEMIA
     Dosage: 10 MG/DAILY/PO
     Route: 048
     Dates: start: 20040318, end: 20040405
  2. ZETIA [Suspect]
     Indication: HYPERCHOLESTEROLAEMIA
     Dosage: 10 MG/DAILY/PO
     Route: 048
     Dates: start: 20040409, end: 20040428
  3. DEPAKOTE [Concomitant]
     Indication: HYPERLIPIDAEMIA
  4. LASIX [Concomitant]
  5. NORVASC [Concomitant]
  6. PRINIVIL [Concomitant]
  7. ZYPREXA [Concomitant]
  8. ALLOPURINOL [Concomitant]
  9. ATENOLOL [Concomitant]
  10. COLCHICINE [Concomitant]
  11. LORAZEPAM [Concomitant]

REACTIONS (1)
  - PAIN IN EXTREMITY [None]
